FAERS Safety Report 18438130 (Version 3)
Quarter: 2021Q2

REPORT INFORMATION
  Report Type: Spontaneous
  Country: US (occurrence: US)
  Receive Date: 20201029
  Receipt Date: 20210429
  Transmission Date: 20210717
  Serious: No
  Sender: FDA-Public Use
  Company Number: US-AKCEA THERAPEUTICS-2020IS001469

PATIENT
  Age: 67 Year
  Sex: Female

DRUGS (3)
  1. TEGSEDI [Suspect]
     Active Substance: INOTERSEN SODIUM
     Route: 058
     Dates: end: 20200928
  2. TEGSEDI [Suspect]
     Active Substance: INOTERSEN SODIUM
     Indication: HEREDITARY NEUROPATHIC AMYLOIDOSIS
     Route: 058
  3. ISSD (INTEGRATED SYRINGE SAFETY DEVICE) [Suspect]
     Active Substance: DEVICE

REACTIONS (15)
  - Urine ketone body present [Unknown]
  - Urine protein/creatinine ratio increased [Unknown]
  - Urinary sediment present [Unknown]
  - Nitrite urine present [Unknown]
  - Urine leukocyte esterase positive [Unknown]
  - Urinary casts [Unknown]
  - Urine abnormality [Unknown]
  - Urine analysis abnormal [Unknown]
  - White blood cells urine positive [Unknown]
  - Fungal test positive [Unknown]
  - Urinary occult blood positive [Unknown]
  - Pyuria [Unknown]
  - Protein urine present [Unknown]
  - Bacterial test positive [Unknown]
  - Red blood cells urine positive [Unknown]

NARRATIVE: CASE EVENT DATE: 202010
